FAERS Safety Report 15916063 (Version 2)
Quarter: 2019Q1

REPORT INFORMATION
  Report Type: Spontaneous
  Country: JP (occurrence: JP)
  Receive Date: 20190204
  Receipt Date: 20190211
  Transmission Date: 20190417
  Serious: Yes (Other)
  Sender: FDA-Public Use
  Company Number: JP-AMGEN-JPNSP2019016192

PATIENT
  Age: 77 Year
  Sex: Female

DRUGS (1)
  1. ENBREL [Suspect]
     Active Substance: ETANERCEPT
     Indication: STILL^S DISEASE
     Dosage: 50 MG, QWK
     Route: 058

REACTIONS (4)
  - White blood cell count decreased [Unknown]
  - Product use in unapproved indication [Not Recovered/Not Resolved]
  - Platelet count decreased [Unknown]
  - Therapeutic response decreased [Unknown]
